FAERS Safety Report 5409830-0 (Version None)
Quarter: 2007Q3

REPORT INFORMATION
  Report Type: 
  Country: None (occurrence: None)
  Receive Date: 20070809
  Receipt Date: 20070802
  Transmission Date: 20080115
  Serious: Yes (Other)
  Sender: FDA-Public Use
  Company Number: CH-ASTRAZENECA-2007PK01663

PATIENT
  Age: 97 Year
  Sex: Female
  Weight: 82 kg

DRUGS (8)
  1. NEXIUM [Suspect]
     Route: 048
     Dates: start: 20070320
  2. SINTROM [Interacting]
     Indication: ATRIAL FIBRILLATION
     Route: 048
     Dates: end: 20070319
  3. SINTROM [Interacting]
     Indication: ATRIAL FLUTTER
     Route: 048
     Dates: end: 20070319
  4. SINTROM [Interacting]
     Route: 048
     Dates: start: 20070321, end: 20070323
  5. SINTROM [Interacting]
     Route: 048
     Dates: start: 20070321, end: 20070323
  6. MORPHINE SULFATE [Concomitant]
     Route: 058
     Dates: start: 20070319
  7. PRACTO-CLYSS [Concomitant]
     Dosage: 1 ENEMA TWICE A WEEK
     Route: 054
     Dates: start: 20070319
  8. PASPERTIN [Concomitant]
     Dates: start: 20070319, end: 20070406

REACTIONS (2)
  - COAGULATION TIME PROLONGED [None]
  - DRUG INTERACTION [None]
